FAERS Safety Report 16470503 (Version 8)
Quarter: 2019Q3

REPORT INFORMATION
  Report Type: Report from Study
  Country: MX (occurrence: MX)
  Receive Date: 20190624
  Receipt Date: 20190822
  Transmission Date: 20191004
  Serious: Yes (Other)
  Sender: FDA-Public Use
  Company Number: PHHY2016MX153467

PATIENT
  Age: 56 Year
  Sex: Female
  Weight: 85 kg

DRUGS (10)
  1. LEVOTHYROXINE. [Suspect]
     Active Substance: LEVOTHYROXINE
     Dosage: 0.5 DF, QD
     Route: 048
  2. ELATEC [Concomitant]
     Indication: PERIPHERAL VENOUS DISEASE
     Dosage: UNK
     Route: 048
     Dates: start: 2001
  3. ENALAPRIL [Concomitant]
     Active Substance: ENALAPRIL
     Indication: HYPERTENSION
     Dosage: 1 DF, QD (AT NIGHT)
     Route: 048
     Dates: start: 2001
  4. GALVUS [Suspect]
     Active Substance: VILDAGLIPTIN
     Indication: DIABETES MELLITUS
     Dosage: 50 MG, QD
     Route: 048
     Dates: start: 200411, end: 201501
  5. GALVUS MET [Suspect]
     Active Substance: METFORMIN HYDROCHLORIDE\VILDAGLIPTIN
     Indication: DIABETES MELLITUS
     Dosage: 1 DF (METFORMIN 500MG/VILDAGLIPTIN 50 MG), QD
     Route: 048
     Dates: start: 201501
  6. LEVOTHYROXINE. [Suspect]
     Active Substance: LEVOTHYROXINE
     Indication: HYPOTHYROIDISM
     Dosage: 1 DF, QD
     Route: 048
  7. CYTOMEL [Suspect]
     Active Substance: LIOTHYRONINE SODIUM
     Indication: FATIGUE
     Route: 065
  8. URETRON D/S [Concomitant]
     Indication: HYPERTONIC BLADDER
     Dosage: UNK
     Route: 065
     Dates: start: 2014
  9. GALVUS MET [Suspect]
     Active Substance: METFORMIN HYDROCHLORIDE\VILDAGLIPTIN
     Dosage: 1 DF (METFORMIN 850MG/VILDAGLIPTIN 50 MG), QD (APPROXIMATELY 5 OR 6 YEARS AGO)
     Route: 048
  10. METFORMIN [Concomitant]
     Active Substance: METFORMIN HYDROCHLORIDE
     Indication: DIABETES MELLITUS
     Dosage: 0.5 (850 MG) DF, TID
     Route: 048
     Dates: start: 2013, end: 2015

REACTIONS (19)
  - Hot flush [Not Recovered/Not Resolved]
  - Insomnia [Unknown]
  - Weight increased [Not Recovered/Not Resolved]
  - Hyperhidrosis [Unknown]
  - Decreased interest [Not Recovered/Not Resolved]
  - Renal disorder [Not Recovered/Not Resolved]
  - Tachycardia [Unknown]
  - Dysstasia [Unknown]
  - Oxygen saturation decreased [Unknown]
  - Fatigue [Recovering/Resolving]
  - Discomfort [Unknown]
  - Dry eye [Unknown]
  - Hormone level abnormal [Unknown]
  - Hypothyroidism [Not Recovered/Not Resolved]
  - Urinary tract infection [Unknown]
  - Memory impairment [Unknown]
  - Somnolence [Unknown]
  - Arthralgia [Not Recovered/Not Resolved]
  - Feeling abnormal [Recovered/Resolved]

NARRATIVE: CASE EVENT DATE: 201606
